FAERS Safety Report 6137079-5 (Version None)
Quarter: 2009Q1

REPORT INFORMATION
  Report Type: 
  Country: None (occurrence: None)
  Receive Date: 20090330
  Receipt Date: 20090316
  Transmission Date: 20090719
  Serious: Yes (Other)
  Sender: FDA-Public Use
  Company Number: JP-ROCHE-620968

PATIENT
  Age: 59 Year
  Sex: Male

DRUGS (5)
  1. CELLCEPT [Suspect]
     Indication: PROPHYLAXIS AGAINST TRANSPLANT REJECTION
     Route: 048
     Dates: start: 20070101
  2. TACROLIMUS HYDRATE [Concomitant]
     Route: 048
     Dates: start: 20070101
  3. TACROLIMUS HYDRATE [Concomitant]
     Route: 048
     Dates: start: 20080101
  4. PREDNISOLONE [Concomitant]
     Dosage: FORM: ORAL FORMULATION (NOT OTHERWISE SPECIFIED)
     Route: 048
     Dates: start: 20070101
  5. ORTHOCLONE OKT3 [Concomitant]
     Dosage: ROUTE: INTRAVENOUS (NOT OTHERWISE SPECIFIED)
     Route: 042
     Dates: start: 20070101, end: 20070101

REACTIONS (2)
  - INFECTIVE SPONDYLITIS [None]
  - SPINAL COMPRESSION FRACTURE [None]
